FAERS Safety Report 14427835 (Version 2)
Quarter: 2018Q1

REPORT INFORMATION
  Report Type: Spontaneous
  Country: US (occurrence: US)
  Receive Date: 20180123
  Receipt Date: 20180313
  Transmission Date: 20180509
  Serious: No
  Sender: FDA-Public Use
  Company Number: US-BIOGEN-2018BI00514782

PATIENT
  Sex: Female

DRUGS (2)
  1. TYSABRI [Suspect]
     Active Substance: NATALIZUMAB
     Route: 042
  2. TYSABRI [Suspect]
     Active Substance: NATALIZUMAB
     Indication: MULTIPLE SCLEROSIS
     Route: 042
     Dates: start: 20090522

REACTIONS (5)
  - Lymphocyte count increased [Unknown]
  - White blood cell count abnormal [Unknown]
  - CD4 lymphocytes abnormal [Unknown]
  - CD8 lymphocytes abnormal [Unknown]
  - Red blood cell nucleated morphology present [Unknown]
